FAERS Safety Report 7787884-4 (Version None)
Quarter: 2011Q3

REPORT INFORMATION
  Report Type: 
  Country: None (occurrence: None)
  Receive Date: 20110930
  Receipt Date: 20110926
  Transmission Date: 20111222
  Serious: No
  Sender: FDA-Public Use
  Company Number: US-BIOGENIDEC-2011BI035315

PATIENT
  Age: 51 Year
  Sex: Female

DRUGS (3)
  1. AMBIEN [Concomitant]
     Indication: INSOMNIA
  2. TRAZODONE HYDROCHLORIDE [Concomitant]
     Indication: INSOMNIA
  3. TYSABRI [Suspect]
     Indication: MULTIPLE SCLEROSIS
     Route: 042
     Dates: start: 20110902

REACTIONS (4)
  - NASOPHARYNGITIS [None]
  - MALAISE [None]
  - FATIGUE [None]
  - ORAL CANDIDIASIS [None]
